FAERS Safety Report 15716822 (Version 3)
Quarter: 2019Q1

REPORT INFORMATION
  Report Type: Spontaneous
  Country: JP (occurrence: JP)
  Receive Date: 20181213
  Receipt Date: 20190219
  Transmission Date: 20190417
  Serious: Yes (Hospitalization, Other)
  Sender: FDA-Public Use
  Company Number: JP-ROCHE-2230406

PATIENT
  Age: 24 Year
  Sex: Female
  Weight: 48 kg

DRUGS (27)
  1. ACTEMRA [Suspect]
     Active Substance: TOCILIZUMAB
     Indication: TAKAYASU^S ARTERITIS
     Route: 058
     Dates: start: 20170714, end: 20181031
  2. ACTONEL [Concomitant]
     Active Substance: RISEDRONATE SODIUM
     Route: 048
     Dates: start: 20181211
  3. INCREMIN (JAPAN) [Concomitant]
     Dosage: DOSAGE IS UNCERTAIN.
     Route: 048
     Dates: start: 20181126
  4. NEXIUM [Concomitant]
     Active Substance: ESOMEPRAZOLE MAGNESIUM
     Route: 048
     Dates: start: 20181126
  5. OLOPATADINE HYDROCHLORIDE. [Concomitant]
     Active Substance: OLOPATADINE HYDROCHLORIDE
     Dosage: DOSAGE IS UNCERTAIN.
     Route: 048
     Dates: start: 20181126
  6. ATORVASTATIN CALCIUM TRIHYDRATE [Concomitant]
     Active Substance: ATORVASTATIN CALCIUM
     Dosage: DOSAGE IS UNCERTAIN.
     Route: 048
     Dates: start: 20181126
  7. FEXOFENADINE HYDROCHLORIDE. [Concomitant]
     Active Substance: FEXOFENADINE HYDROCHLORIDE
     Dosage: DOSAGE IS UNCERTAIN.
     Route: 048
     Dates: start: 20181126
  8. LUNESTA [Concomitant]
     Active Substance: ESZOPICLONE
     Dosage: DOSAGE IS UNCERTAIN.
     Route: 048
     Dates: start: 20181126
  9. PREDONINE [Suspect]
     Active Substance: PREDNISOLONE
     Route: 048
     Dates: start: 201811
  10. NEXIUM [Concomitant]
     Active Substance: ESOMEPRAZOLE MAGNESIUM
     Route: 048
     Dates: start: 20181211
  11. FLUNITRAZEPAM [Concomitant]
     Active Substance: FLUNITRAZEPAM
     Dosage: DOSAGE IS UNCERTAIN.
     Route: 048
     Dates: start: 20181126
  12. ANPLAG [Concomitant]
     Active Substance: SARPOGRELATE
     Dosage: DOSAGE IS UNCERTAIN.
     Route: 048
     Dates: start: 20181126
  13. INCREMIN (JAPAN) [Concomitant]
     Dosage: DOSAGE IS UNCERTAIN.
     Route: 048
     Dates: start: 20181211
  14. ACTONEL [Concomitant]
     Active Substance: RISEDRONATE SODIUM
     Route: 048
     Dates: start: 20181126
  15. BAKTAR [Concomitant]
     Active Substance: SULFAMETHOXAZOLE\TRIMETHOPRIM
     Route: 048
     Dates: start: 20181126
  16. BAKTAR [Concomitant]
     Active Substance: SULFAMETHOXAZOLE\TRIMETHOPRIM
     Route: 048
     Dates: start: 20181211
  17. FLUNITRAZEPAM [Concomitant]
     Active Substance: FLUNITRAZEPAM
     Dosage: DOSAGE IS UNCERTAIN.
     Route: 048
     Dates: start: 20181204
  18. ANPLAG [Concomitant]
     Active Substance: SARPOGRELATE
     Dosage: DOSAGE IS UNCERTAIN.
     Route: 048
     Dates: start: 20181216
  19. OLOPATADINE HYDROCHLORIDE. [Concomitant]
     Active Substance: OLOPATADINE HYDROCHLORIDE
     Dosage: DOSAGE IS UNCERTAIN.
     Route: 048
     Dates: start: 20181204
  20. LUNESTA [Concomitant]
     Active Substance: ESZOPICLONE
     Dosage: DOSAGE IS UNCERTAIN.
     Route: 048
     Dates: start: 20181204
  21. CALONAL [Concomitant]
     Active Substance: ACETAMINOPHEN
     Dosage: DOSAGE IS UNCERTAIN.
     Route: 048
     Dates: start: 20181126
  22. WARFARIN [Concomitant]
     Active Substance: WARFARIN
     Dosage: DOSAGE IS UNCERTAIN.
     Route: 048
     Dates: start: 20181126
  23. PREDONINE [Suspect]
     Active Substance: PREDNISOLONE
     Indication: PRODUCT USED FOR UNKNOWN INDICATION
     Route: 048
     Dates: start: 201212
  24. FEXOFENADINE HYDROCHLORIDE. [Concomitant]
     Active Substance: FEXOFENADINE HYDROCHLORIDE
     Dosage: DOSAGE IS UNCERTAIN.
     Route: 048
     Dates: start: 20181204
  25. ACTEMRA [Suspect]
     Active Substance: TOCILIZUMAB
     Route: 058
     Dates: start: 20181101, end: 20181122
  26. PREDONINE [Suspect]
     Active Substance: PREDNISOLONE
     Dosage: DOSE INTERVAL UNCERTAINTY
     Route: 048
  27. ATORVASTATIN CALCIUM TRIHYDRATE [Concomitant]
     Active Substance: ATORVASTATIN CALCIUM
     Dosage: DOSAGE IS UNCERTAIN.
     Route: 048
     Dates: start: 20181211

REACTIONS (6)
  - Enteritis infectious [Unknown]
  - Arthralgia [Unknown]
  - Enterocolitis [Recovered/Resolved]
  - Ileal ulcer [Unknown]
  - Off label use [Unknown]
  - Intentional product use issue [Unknown]

NARRATIVE: CASE EVENT DATE: 20181017
